FAERS Safety Report 5119449-7 (Version None)
Quarter: 2006Q3

REPORT INFORMATION
  Report Type: 
  Country: None (occurrence: None)
  Receive Date: 20060928
  Receipt Date: 20060915
  Transmission Date: 20061208
  Serious: Yes (Death)
  Sender: FDA-Public Use
  Company Number: 2006112226

PATIENT
  Age: 23 Year
  Sex: Male

DRUGS (3)
  1. GABAPENTIN [Suspect]
     Dosage: ORAL
     Route: 048
  2. AMITRIPTYLINE HYDROCHLORIDE [Suspect]
     Dosage: ORAL
     Route: 048
  3. TRAMADOL HCL [Suspect]
     Dosage: ORAL
     Route: 048

REACTIONS (2)
  - COMPLETED SUICIDE [None]
  - INJURY [None]
